FAERS Safety Report 9882812 (Version 2)
Quarter: 2014Q2

REPORT INFORMATION
  Report Type: Report from Study
  Country: BR (occurrence: BR)
  Receive Date: 20140207
  Receipt Date: 20140409
  Transmission Date: 20141212
  Serious: Yes (Hospitalization)
  Sender: FDA-Public Use
  Company Number: BR-ABBVIE-14P-020-1198136-00

PATIENT
  Age: 37 Year
  Sex: Female
  Weight: 61 kg

DRUGS (4)
  1. HUMIRA [Suspect]
     Indication: RHEUMATOID ARTHRITIS
     Route: 058
     Dates: start: 20090101
  2. HUMIRA [Suspect]
     Route: 058
     Dates: start: 201308, end: 20131210
  3. ARAVA [Concomitant]
     Indication: PRODUCT USED FOR UNKNOWN INDICATION
     Route: 048
     Dates: end: 200902
  4. METHOTREXATE [Concomitant]
     Indication: PRODUCT USED FOR UNKNOWN INDICATION
     Dosage: ONCE IN A WEEK
     Route: 048

REACTIONS (10)
  - Gait disturbance [Not Recovered/Not Resolved]
  - Urinary tract infection [Recovering/Resolving]
  - Joint swelling [Not Recovered/Not Resolved]
  - Arthralgia [Not Recovered/Not Resolved]
  - Dysuria [Unknown]
  - Cystitis [Unknown]
  - Urinary tract infection [Unknown]
  - Drug ineffective [Unknown]
  - Coagulation factor deficiency [Unknown]
  - Cervical incompetence [Unknown]
